FAERS Safety Report 7381232-X (Version None)
Quarter: 2011Q1

REPORT INFORMATION
  Report Type: 
  Country: None (occurrence: None)
  Receive Date: 20110329
  Receipt Date: 20110322
  Transmission Date: 20110831
  Serious: Yes (Death)
  Sender: FDA-Public Use
  Company Number: NL-GENZYME-THYM-1002367

PATIENT

DRUGS (2)
  1. THYMOGLOBULIN [Suspect]
     Indication: APLASTIC ANAEMIA
     Dosage: 5 MG/KG, QD
     Route: 042
  2. CYCLOSPORINE [Concomitant]
     Indication: APLASTIC ANAEMIA

REACTIONS (2)
  - ACUTE GRAFT VERSUS HOST DISEASE [None]
  - NO THERAPEUTIC RESPONSE [None]
